FAERS Safety Report 4640706-2 (Version None)
Quarter: 2005Q2

REPORT INFORMATION
  Report Type: 
  Country: None (occurrence: None)
  Receive Date: 20050419
  Receipt Date: 20050221
  Transmission Date: 20051028
  Serious: Yes (Other)
  Sender: FDA-Public Use
  Company Number: 805#1#2005-00008

PATIENT
  Age: 33 Year
  Sex: Female

DRUGS (11)
  1. ALPROSTADIL [Suspect]
     Indication: HEART DISEASE CONGENITAL
     Dosage: SEE IMAGE
     Route: 041
     Dates: start: 20041104, end: 20041104
  2. ALPROSTADIL [Suspect]
     Indication: HEART DISEASE CONGENITAL
     Dosage: SEE IMAGE
     Route: 041
     Dates: start: 20041124, end: 20041126
  3. ALPROSTADIL [Suspect]
     Indication: HEART DISEASE CONGENITAL
     Dosage: SEE IMAGE
     Route: 041
     Dates: start: 20041126, end: 20041129
  4. ALPROSTADIL [Suspect]
     Indication: HEART DISEASE CONGENITAL
     Dosage: SEE IMAGE
     Route: 041
     Dates: start: 20041129, end: 20041201
  5. ALPROSTADIL [Suspect]
     Indication: HEART DISEASE CONGENITAL
     Dosage: SEE IMAGE
     Route: 041
     Dates: start: 20041201, end: 20041214
  6. AMPICILLIN [Concomitant]
  7. GABEXATE-MESILATE(GABEXATE MESILATE) [Concomitant]
  8. FENTANYL CITRATE [Concomitant]
  9. ULINASTATIN (URINASTATIN) [Concomitant]
  10. CEFAZOLIN SODIUM [Concomitant]
  11. MIDAZOLAM HCL (MIDAZOLAM HCL) [Concomitant]

REACTIONS (3)
  - APNOEIC ATTACK [None]
  - CONDITION AGGRAVATED [None]
  - PATENT DUCTUS ARTERIOSUS [None]
